FAERS Safety Report 25494479 (Version 1)
Quarter: 2025Q2

REPORT INFORMATION
  Report Type: Spontaneous
  Country: CN (occurrence: CN)
  Receive Date: 20250630
  Receipt Date: 20250630
  Transmission Date: 20250716
  Serious: Yes (Other)
  Sender: MERCK SHARP & DOHME LLC
  Company Number: CN-009507513-2300118

PATIENT
  Age: 42 Year
  Sex: Female

DRUGS (2)
  1. TEMOZOLOMIDE [Suspect]
     Active Substance: TEMOZOLOMIDE
     Indication: Non-small cell lung cancer metastatic
     Route: 048
  2. BEVACIZUMAB [Concomitant]
     Active Substance: BEVACIZUMAB
     Indication: Non-small cell lung cancer metastatic

REACTIONS (3)
  - Malignant neoplasm progression [Recovering/Resolving]
  - Product use in unapproved indication [Unknown]
  - Brain oedema [Recovering/Resolving]
